FAERS Safety Report 17054025 (Version 1)
Quarter: 2019Q4

REPORT INFORMATION
  Report Type: Spontaneous
  Country: US (occurrence: US)
  Receive Date: 20191120
  Receipt Date: 20191120
  Transmission Date: 20200122
  Serious: Yes (Other)
  Sender: FDA-Public Use
  Company Number: US-PFIZER INC-2019498261

PATIENT
  Age: 80 Year
  Sex: Female

DRUGS (2)
  1. PREMARIN [Suspect]
     Active Substance: ESTROGENS, CONJUGATED
     Dosage: UNK [FOR 1 WEEK AND THEN THRICE A WEEK]
     Route: 054
  2. PREMARIN [Suspect]
     Active Substance: ESTROGENS, CONJUGATED
     Dosage: UNK [FOR 1 WEEK AND THEN THRICE A WEEK]
     Route: 067

REACTIONS (6)
  - Product administered at inappropriate site [Unknown]
  - Off label use [Unknown]
  - Cataract [Unknown]
  - Drug ineffective [Unknown]
  - Eye pain [Unknown]
  - Hypoacusis [Unknown]
